FAERS Safety Report 14267566 (Version 1)
Quarter: 2017Q4

REPORT INFORMATION
  Report Type: Spontaneous
  Country: US (occurrence: US)
  Receive Date: 20171211
  Receipt Date: 20171211
  Transmission Date: 20180321
  Serious: No
  Sender: FDA-Public Use
  Company Number: US-AUROBINDO-AUR-APU-2017-34778

PATIENT
  Sex: Female

DRUGS (2)
  1. MIRTAZAPINE TABLETS 7.5 MG [Suspect]
     Active Substance: MIRTAZAPINE
     Indication: INSOMNIA
     Dosage: 7.5 MG, AT BED TIME
     Route: 048
  2. NIFEDIPINE. [Suspect]
     Active Substance: NIFEDIPINE
     Indication: PRODUCT USED FOR UNKNOWN INDICATION
     Dosage: 30 MG, ONCE A DAY
     Route: 048

REACTIONS (2)
  - Anxiety [Unknown]
  - Drug interaction [Unknown]
